FAERS Safety Report 6826633-0 (Version None)
Quarter: 2010Q3

REPORT INFORMATION
  Report Type: 
  Country: None (occurrence: None)
  Receive Date: 20100709
  Receipt Date: 20100702
  Transmission Date: 20110219
  Serious: Yes (Life-Threatening, Other)
  Sender: FDA-Public Use
  Company Number: IT-PFIZER INC-2010048679

PATIENT
  Age: 90 Year
  Sex: Male

DRUGS (6)
  1. DIFLUCAN [Suspect]
     Indication: BRONCHOPNEUMOPATHY
     Dosage: 200 MG, DAILY
     Route: 042
     Dates: start: 20100403, end: 20100406
  2. LEVOXACIN [Suspect]
     Indication: BRONCHOPNEUMOPATHY
     Dosage: 500 MG, DAILY
     Route: 042
     Dates: start: 20100403, end: 20100406
  3. SERTRALINE [Concomitant]
     Dosage: 50 MG, UNK
     Route: 048
  4. ACCURETIC [Concomitant]
     Dosage: 16.25 MG
     Route: 048
  5. LANOXIN [Concomitant]
     Dosage: 1 UNIT DOSE
     Route: 048
  6. TAZOCIN [Concomitant]
     Dosage: 6.75 G
     Route: 042

REACTIONS (3)
  - CARDIAC ARREST [None]
  - TORSADE DE POINTES [None]
  - VENTRICULAR FIBRILLATION [None]
